FAERS Safety Report 25839058 (Version 1)
Quarter: 2025Q3

REPORT INFORMATION
  Report Type: Spontaneous
  Country: US (occurrence: US)
  Receive Date: 20250924
  Receipt Date: 20250924
  Transmission Date: 20251020
  Serious: Yes (Other)
  Sender: IPCA
  Company Number: US-IPCA LABORATORIES LIMITED-IPC-2025-US-002567

PATIENT

DRUGS (2)
  1. HYDROXYCHLOROQUINE [Suspect]
     Active Substance: HYDROXYCHLOROQUINE
     Indication: Rheumatoid arthritis
     Route: 065
  2. PREDNISONE [Suspect]
     Active Substance: PREDNISONE
     Indication: Rheumatoid arthritis
     Route: 065

REACTIONS (14)
  - Cardiac dysfunction [Unknown]
  - Pneumonia [Unknown]
  - Myopathy [Unknown]
  - Muscular weakness [Unknown]
  - Dysphonia [Recovering/Resolving]
  - Dysarthria [Unknown]
  - Cough [Unknown]
  - Respiratory disorder [Unknown]
  - Asthenia [Recovering/Resolving]
  - Weight decreased [Unknown]
  - Blood creatine phosphokinase increased [Unknown]
  - Transaminases increased [Unknown]
  - Blood lactate dehydrogenase increased [Unknown]
  - Brain natriuretic peptide increased [Unknown]
